FAERS Safety Report 12125005 (Version 1)
Quarter: 2016Q1

REPORT INFORMATION
  Report Type: Spontaneous
  Country: DK (occurrence: DK)
  Receive Date: 20160229
  Receipt Date: 20160229
  Transmission Date: 20160526
  Serious: Yes (Disabling)
  Sender: FDA-Public Use
  Company Number: DK-BAUSCH-BL-2016-004713

PATIENT
  Age: 65 Year
  Sex: Male

DRUGS (1)
  1. ZYCLARA [Suspect]
     Active Substance: IMIQUIMOD
     Indication: ACTINIC KERATOSIS
     Route: 003
     Dates: start: 201410, end: 201411

REACTIONS (3)
  - Blister [Not Recovered/Not Resolved]
  - Pemphigoid [Not Recovered/Not Resolved]
  - Rash [Not Recovered/Not Resolved]

NARRATIVE: CASE EVENT DATE: 201410
